FAERS Safety Report 13922042 (Version 1)
Quarter: 2017Q3

REPORT INFORMATION
  Report Type: Spontaneous
  Country: US (occurrence: US)
  Receive Date: 20170830
  Receipt Date: 20170830
  Transmission Date: 20171127
  Serious: No
  Sender: FDA-Public Use
  Company Number: US-PFIZER INC-2017369262

PATIENT
  Sex: Female

DRUGS (2)
  1. LIPITOR [Suspect]
     Active Substance: ATORVASTATIN CALCIUM
  2. CELEBREX [Suspect]
     Active Substance: CELECOXIB

REACTIONS (2)
  - Drug ineffective [Unknown]
  - Muscle disorder [Unknown]
